FAERS Safety Report 5082910-8 (Version None)
Quarter: 2006Q3

REPORT INFORMATION
  Report Type: 
  Country: None (occurrence: None)
  Receive Date: 20060720
  Receipt Date: 20060428
  Transmission Date: 20061208
  Serious: Yes (Hospitalization)
  Sender: FDA-Public Use
  Company Number: 2006057910

PATIENT
  Age: 81 Year
  Sex: Female
  Weight: 61.2356 kg

DRUGS (1)
  1. CELEBREX [Suspect]
     Indication: ARTHRITIS
     Dosage: (200 MG)
     Dates: start: 20020301

REACTIONS (1)
  - CEREBROVASCULAR ACCIDENT [None]
